FAERS Safety Report 22908064 (Version 2)
Quarter: 2024Q1

REPORT INFORMATION
  Report Type: Spontaneous
  Country: ES (occurrence: ES)
  Receive Date: 20230905
  Receipt Date: 20240228
  Transmission Date: 20240410
  Serious: Yes (Hospitalization)
  Sender: FDA-Public Use
  Company Number: None

PATIENT
  Age: 74 Year
  Sex: Female

DRUGS (6)
  1. DEXAMETHASONE [Suspect]
     Active Substance: DEXAMETHASONE
     Indication: Surgery
     Route: 042
     Dates: start: 20230314, end: 20230314
  2. FENTANYL [Suspect]
     Active Substance: FENTANYL\FENTANYL CITRATE
     Indication: Surgery
     Route: 042
     Dates: start: 20230314, end: 20230314
  3. METRONIDAZOLE [Suspect]
     Active Substance: METRONIDAZOLE
     Indication: Surgery
     Route: 042
     Dates: start: 20230314, end: 20230314
  4. EPHEDRINE HYDROCHLORIDE [Suspect]
     Active Substance: EPHEDRINE HYDROCHLORIDE
     Indication: Surgery
     Dosage: EFEDRINA HIDROCLORURO
     Route: 042
     Dates: start: 20230314, end: 20230314
  5. ROCURONIUM BROMIDE [Suspect]
     Active Substance: ROCURONIUM BROMIDE
     Indication: Surgery
     Route: 042
     Dates: start: 20230314, end: 20230314
  6. PROPOFOL [Suspect]
     Active Substance: PROPOFOL
     Indication: Surgery
     Route: 042
     Dates: start: 20230314, end: 20230314

REACTIONS (1)
  - Erythema multiforme [Recovered/Resolved]

NARRATIVE: CASE EVENT DATE: 20230314
